FAERS Safety Report 4748566-6 (Version None)
Quarter: 2005Q3

REPORT INFORMATION
  Report Type: 
  Country: None (occurrence: None)
  Receive Date: 20050818
  Receipt Date: 20050818
  Transmission Date: 20060218
  Serious: No
  Sender: FDA-Public Use
  Company Number: None

PATIENT
  Age: 56 Year
  Sex: Female

DRUGS (1)
  1. SYNTHROID [Suspect]
     Dates: start: 20050401, end: 20050701

REACTIONS (3)
  - AGEUSIA [None]
  - ANOSMIA [None]
  - PHARMACEUTICAL PRODUCT COMPLAINT [None]
